FAERS Safety Report 7789790-8 (Version None)
Quarter: 2011Q3

REPORT INFORMATION
  Report Type: 
  Country: None (occurrence: None)
  Receive Date: 20110930
  Receipt Date: 20100917
  Transmission Date: 20111222
  Serious: No
  Sender: FDA-Public Use
  Company Number: US-ASTRAZENECA-2008UW24006

PATIENT
  Age: 75 Year
  Sex: Female

DRUGS (8)
  1. SYNTHROID [Concomitant]
  2. ZOCOR [Concomitant]
  3. COUMADIN [Concomitant]
  4. ARIMIDEX [Suspect]
     Route: 048
     Dates: start: 20081231
  5. SECTRAL [Concomitant]
  6. ARIMIDEX [Suspect]
     Route: 048
     Dates: start: 20080701, end: 20081119
  7. TIKOSAN [Concomitant]
  8. ALENDRONATE SODIUM [Concomitant]

REACTIONS (6)
  - MOBILITY DECREASED [None]
  - INSOMNIA [None]
  - FATIGUE [None]
  - DRUG DOSE OMISSION [None]
  - ASTHENIA [None]
  - POLLAKIURIA [None]
